FAERS Safety Report 18502365 (Version 2)
Quarter: 2020Q4

REPORT INFORMATION
  Report Type: Report from Study
  Country: US (occurrence: US)
  Receive Date: 20201113
  Receipt Date: 20201114
  Transmission Date: 20210114
  Serious: Yes (Other)
  Sender: FDA-Public Use
  Company Number: US-JNJFOC-20201050500

PATIENT
  Sex: Female

DRUGS (1)
  1. STELARA [Suspect]
     Active Substance: USTEKINUMAB
     Indication: COLITIS ULCERATIVE
     Route: 042
     Dates: start: 20201013

REACTIONS (6)
  - Pain [Unknown]
  - Headache [Not Recovered/Not Resolved]
  - Aneurysm [Not Recovered/Not Resolved]
  - Photophobia [Unknown]
  - Cerebral thrombosis [Not Recovered/Not Resolved]
  - Drug ineffective [Unknown]
